FAERS Safety Report 11791838 (Version 2)
Quarter: 2015Q4

REPORT INFORMATION
  Report Type: Spontaneous
  Country: US (occurrence: US)
  Receive Date: 20151201
  Receipt Date: 20151207
  Transmission Date: 20160305
  Serious: Yes (Death)
  Sender: FDA-Public Use
  Company Number: US-EXELIXIS-CABO-14004027

PATIENT
  Age: 45 Year
  Sex: Male
  Weight: 65.9 kg

DRUGS (2)
  1. COMETRIQ [Suspect]
     Active Substance: CABOZANTINIB S-MALATE
     Dosage: 80 MG, QD
     Route: 048
     Dates: start: 201403, end: 20140310
  2. COMETRIQ [Suspect]
     Active Substance: CABOZANTINIB S-MALATE
     Indication: THYROID CANCER
     Dosage: 140 MG, QD
     Route: 048
     Dates: start: 20140213, end: 201403

REACTIONS (6)
  - Decreased appetite [Unknown]
  - Fatigue [Unknown]
  - Vision blurred [Unknown]
  - Dysgeusia [Unknown]
  - Death [Fatal]
  - Anal haemorrhage [Unknown]

NARRATIVE: CASE EVENT DATE: 20140215
